FAERS Safety Report 9174285 (Version 2)
Quarter: 2013Q2

REPORT INFORMATION
  Report Type: Spontaneous
  Country: US (occurrence: US)
  Receive Date: 20130320
  Receipt Date: 20130422
  Transmission Date: 20140414
  Serious: No
  Sender: FDA-Public Use
  Company Number: US-PFIZER INC-2013090578

PATIENT
  Age: 50 Year
  Sex: Female
  Weight: 79.37 kg

DRUGS (11)
  1. LYRICA [Suspect]
     Indication: FIBROMYALGIA
     Dosage: 150 MG, 2X/DAY
     Route: 048
     Dates: start: 2010
  2. LYRICA [Suspect]
     Indication: BACK PAIN
     Dosage: 150 MG, 2X/DAY
     Route: 048
     Dates: start: 20110524, end: 201303
  3. PEPCID [Concomitant]
     Indication: GASTROOESOPHAGEAL REFLUX DISEASE
     Dosage: UNK
  4. PRAVACHOL [Concomitant]
     Indication: BLOOD CHOLESTEROL INCREASED
     Dosage: UNK
  5. KLONOPIN [Concomitant]
     Indication: PANIC ATTACK
     Dosage: UNK
  6. PROZAC [Concomitant]
     Indication: PANIC DISORDER
     Dosage: UNK
  7. PROZAC [Concomitant]
     Indication: DEPRESSION
  8. CLARITIN [Concomitant]
     Indication: SINUS DISORDER
     Dosage: UNK
  9. LATUDA [Concomitant]
     Indication: SCHIZOPHRENIA
     Dosage: UNK
  10. ESTRADIOL [Concomitant]
     Indication: HORMONE REPLACEMENT THERAPY
     Dosage: UNK
  11. AMBIEN [Concomitant]
     Indication: SLEEP DISORDER
     Dosage: UNK

REACTIONS (5)
  - Blood cholesterol increased [Unknown]
  - Blood triglycerides increased [Unknown]
  - Back pain [Not Recovered/Not Resolved]
  - Pain in extremity [Not Recovered/Not Resolved]
  - Abnormal dreams [Unknown]
